FAERS Safety Report 18924443 (Version 2)
Quarter: 2021Q1

REPORT INFORMATION
  Report Type: Report from Study
  Country: BR (occurrence: BR)
  Receive Date: 20210222
  Receipt Date: 20210305
  Transmission Date: 20210420
  Serious: Yes (Other)
  Sender: FDA-Public Use
  Company Number: NVSC2021BR040311

PATIENT
  Age: 50 Year
  Sex: Female
  Weight: 72 kg

DRUGS (2)
  1. ANASTROZOLE. [Concomitant]
     Active Substance: ANASTROZOLE
     Indication: PRODUCT USED FOR UNKNOWN INDICATION
     Dosage: UNK
     Route: 065
  2. KISQALI [Suspect]
     Active Substance: RIBOCICLIB
     Indication: BREAST CANCER METASTATIC
     Dosage: 3 DF, QD (21 DAYS, 7 DAYS PAUSE)
     Route: 065
     Dates: start: 202012

REACTIONS (7)
  - Memory impairment [Not Recovered/Not Resolved]
  - Visual impairment [Not Recovered/Not Resolved]
  - Nervousness [Recovering/Resolving]
  - Depression [Recovering/Resolving]
  - Back pain [Unknown]
  - Blindness [Not Recovered/Not Resolved]
  - Stress [Recovering/Resolving]

NARRATIVE: CASE EVENT DATE: 202012
